FAERS Safety Report 4557429-0 (Version None)
Quarter: 2005Q1

REPORT INFORMATION
  Report Type: 
  Country: None (occurrence: None)
  Receive Date: 20050118
  Receipt Date: 20050103
  Transmission Date: 20050727
  Serious: Yes (Hospitalization, Other)
  Sender: FDA-Public Use
  Company Number: 2003-103757-NL

PATIENT
  Age: 17 Year
  Sex: Female

DRUGS (5)
  1. REMERON SOLTAB [Suspect]
     Indication: MAJOR DEPRESSION
     Dosage: 15 MG QD, ORAL  THREE DOSES
     Route: 048
     Dates: start: 20030224
  2. REMERON SOLTAB [Suspect]
     Indication: OBSESSIVE-COMPULSIVE DISORDER
     Dosage: 15 MG QD, ORAL  THREE DOSES
     Route: 048
     Dates: start: 20030224
  3. REMERON SOLTAB [Suspect]
     Indication: THINKING ABNORMAL
     Dosage: 15 MG QD, ORAL  THREE DOSES
     Route: 048
     Dates: start: 20030224
  4. PAXIL [Suspect]
     Dosage: 10  MG DAILY
  5. LUVOX [Suspect]
     Dosage: 15 MG DAILY

REACTIONS (4)
  - CONVULSION [None]
  - FACIAL SPASM [None]
  - HYPERSENSITIVITY [None]
  - SEROTONIN SYNDROME [None]
